FAERS Safety Report 5208666-3 (Version None)
Quarter: 2007Q1

REPORT INFORMATION
  Report Type: 
  Country: None (occurrence: None)
  Receive Date: 20070116
  Receipt Date: 20070102
  Transmission Date: 20070707
  Serious: Yes (Hospitalization, Other)
  Sender: FDA-Public Use
  Company Number: PHEH2005US10974

PATIENT
  Age: 49 Year
  Sex: Male
  Weight: 58.956 kg

DRUGS (30)
  1. MELPHALAN [Concomitant]
  2. AREDIA [Suspect]
     Indication: MULTIPLE MYELOMA
     Dosage: 60 MG, QMO
     Route: 042
  3. ZOMETA [Suspect]
     Indication: MULTIPLE MYELOMA
     Dosage: 4MG MONTHLY
     Route: 042
     Dates: end: 20050519
  4. MEGACE [Concomitant]
  5. COMPAZINE [Concomitant]
     Dosage: 10 MG, PRN
  6. ZOFRAN [Concomitant]
  7. PREDNISONE TAB [Concomitant]
  8. OXYCONTIN [Concomitant]
  9. TOPROL-XL [Concomitant]
  10. VASOTEC [Concomitant]
  11. NITROGLYCERIN [Concomitant]
  12. PROTONIX [Concomitant]
  13. TYLENOL [Concomitant]
  14. FOLIC ACID [Concomitant]
  15. SENOKOT [Concomitant]
     Dosage: UNK, PRN
  16. COLACE [Concomitant]
  17. REGLAN [Concomitant]
     Dosage: 5 MG, UNK
  18. ATIVAN [Concomitant]
  19. MS CONTIN [Concomitant]
  20. MORPHINE [Concomitant]
  21. REMERON [Concomitant]
  22. AMITRIPTYLINE HCL [Concomitant]
  23. VINCRISTINE [Concomitant]
     Indication: MULTIPLE MYELOMA
     Dates: start: 20030101, end: 20040101
  24. ADRIAMYCIN PFS [Concomitant]
     Indication: MULTIPLE MYELOMA
     Dates: start: 20030101, end: 20040101
  25. DEXAMETHASONE [Concomitant]
     Dates: start: 20030101
  26. THALIDOMIDE [Concomitant]
     Indication: MULTIPLE MYELOMA
     Dosage: 100 MG, UNK
     Route: 048
     Dates: start: 20040217, end: 20040330
  27. VELCADE [Concomitant]
     Indication: MULTIPLE MYELOMA
     Dosage: 1.3 MG/M2
     Route: 042
     Dates: start: 20040330, end: 20040610
  28. METHADONE HCL [Concomitant]
  29. EPOGEN [Concomitant]
  30. HEMATOPOETIC PROGENITOR CELLS HUMAN [Concomitant]
     Dosage: AUTOLOGOUS PSCT
     Dates: start: 20040801

REACTIONS (49)
  - AEROMONA INFECTION [None]
  - ANAEMIA [None]
  - ASTHENIA [None]
  - BACK PAIN [None]
  - BLOOD PRESSURE INCREASED [None]
  - BONE DISORDER [None]
  - CATHETER PLACEMENT [None]
  - CATHETER RELATED INFECTION [None]
  - CATHETER REMOVAL [None]
  - CATHETER SEPSIS [None]
  - CELLULITIS [None]
  - CHEST PAIN [None]
  - CHILLS [None]
  - CLOSTRIDIUM DIFFICILE COLITIS [None]
  - COMPRESSION FRACTURE [None]
  - CONSTIPATION [None]
  - DECREASED APPETITE [None]
  - DIARRHOEA [None]
  - DIZZINESS [None]
  - DYSPNOEA [None]
  - DYSPNOEA PAROXYSMAL NOCTURNAL [None]
  - ENDOCARDITIS [None]
  - FATIGUE [None]
  - GASTROOESOPHAGEAL REFLUX DISEASE [None]
  - HYPERKALAEMIA [None]
  - HYPOPHOSPHATAEMIA [None]
  - HYPOXIA [None]
  - MITRAL VALVE DISEASE [None]
  - MYALGIA [None]
  - NAUSEA [None]
  - NEUROPATHY [None]
  - OSTEONECROSIS [None]
  - OSTEOPENIA [None]
  - PANCYTOPENIA [None]
  - PLATELET TRANSFUSION [None]
  - PROGRESSIVE SUPRANUCLEAR PALSY [None]
  - PYREXIA [None]
  - RASH MACULAR [None]
  - SEDATION [None]
  - SEPSIS [None]
  - STAPHYLOCOCCAL BACTERAEMIA [None]
  - TACHYCARDIA [None]
  - THROMBOCYTOPENIA [None]
  - TOOTH EXTRACTION [None]
  - TOOTHACHE [None]
  - URINARY TRACT INFECTION [None]
  - VOMITING [None]
  - WEIGHT DECREASED [None]
  - WOUND DECOMPOSITION [None]
